FAERS Safety Report 6990344-1 (Version None)
Quarter: 2010Q3

REPORT INFORMATION
  Report Type: 
  Country: None (occurrence: None)
  Receive Date: 20100916
  Receipt Date: 20100528
  Transmission Date: 20110219
  Serious: Yes (Other)
  Sender: FDA-Public Use
  Company Number: CH-PFIZER INC-2010067902

PATIENT
  Age: 38 Year
  Sex: Female

DRUGS (2)
  1. LYRICA [Suspect]
     Indication: PARAESTHESIA
     Dosage: UNK
  2. MAGNESIUM [Suspect]
     Indication: PARAESTHESIA
     Dosage: UNK

REACTIONS (2)
  - DIZZINESS [None]
  - NEOPLASM [None]
